FAERS Safety Report 20810829 (Version 1)
Quarter: 2022Q2

REPORT INFORMATION
  Report Type: Spontaneous
  Country: US (occurrence: US)
  Receive Date: 20220510
  Receipt Date: 20220510
  Transmission Date: 20220720
  Serious: No
  Sender: FDA-Public Use
  Company Number: US-PFIZER INC-202101051639

PATIENT
  Age: 59 Year
  Sex: Female
  Weight: 78.47 kg

DRUGS (1)
  1. LEVOTHYROXINE SODIUM [Suspect]
     Active Substance: LEVOTHYROXINE SODIUM
     Indication: Thyroid disorder
     Dosage: UNK UNK, 1X/DAY (50 MG OR 75 MG)

REACTIONS (2)
  - Feeling abnormal [Unknown]
  - Product prescribing error [Unknown]
